FAERS Safety Report 6596581-2 (Version None)
Quarter: 2010Q1

REPORT INFORMATION
  Report Type: 
  Country: None (occurrence: None)
  Receive Date: 20100222
  Receipt Date: 20100222
  Transmission Date: 20100710
  Serious: Yes (Other)
  Sender: FDA-Public Use
  Company Number: None

PATIENT
  Age: 30 Year
  Sex: Female
  Weight: 51.2565 kg

DRUGS (1)
  1. METRONIDAZOLE [Suspect]
     Indication: VAGINITIS BACTERIAL
     Dosage: 1 APPLICATOR QD VAG
     Route: 067

REACTIONS (4)
  - FATIGUE [None]
  - MUSCLE SPASMS [None]
  - NAUSEA [None]
  - VULVOVAGINAL MYCOTIC INFECTION [None]
